FAERS Safety Report 4674366-1 (Version None)
Quarter: 2005Q2

REPORT INFORMATION
  Report Type: 
  Country: None (occurrence: None)
  Receive Date: 20050524
  Receipt Date: 20050509
  Transmission Date: 20051028
  Serious: Yes (Hospitalization, Other)
  Sender: FDA-Public Use
  Company Number: USA050597562

PATIENT
  Age: 74 Year
  Sex: Female

DRUGS (4)
  1. FORTEO [Suspect]
     Indication: IMPAIRED HEALING
     Dosage: 20 UG/1 DAY
     Dates: start: 20050504
  2. FORTEO [Suspect]
     Indication: POST PROCEDURAL COMPLICATION
     Dosage: 20 UG/1 DAY
     Dates: start: 20050504
  3. FORTEO [Suspect]
     Indication: SPINAL CORD OPERATION
     Dosage: 20 UG/1 DAY
     Dates: start: 20050504
  4. FORTEO [Suspect]
     Indication: SPINAL DISORDER
     Dosage: 20 UG/1 DAY
     Dates: start: 20050504

REACTIONS (1)
  - TRANSIENT ISCHAEMIC ATTACK [None]
